FAERS Safety Report 10342854 (Version 2)
Quarter: 2014Q3

REPORT INFORMATION
  Report Type: Spontaneous
  Country: US (occurrence: None)
  Receive Date: 20140723
  Receipt Date: 20140731
  Transmission Date: 20150326
  Serious: Yes (Hospitalization)
  Sender: FDA-Public Use
  Company Number: US-H14001-14-00260

PATIENT
  Age: 64 Year
  Sex: Male

DRUGS (2)
  1. FLOMAX (MORNIFLUMATE) (CAPSULES) (MORNIFLUMATE) [Concomitant]
  2. INFUMORPH [Suspect]
     Active Substance: MORPHINE SULFATE
     Indication: PAIN
     Route: 037

REACTIONS (9)
  - Post procedural complication [None]
  - Cerebrospinal fluid leakage [None]
  - Urinary retention [None]
  - Incision site erythema [None]
  - Excoriation [None]
  - Headache [None]
  - Incision site complication [None]
  - Wound secretion [None]
  - Photophobia [None]

NARRATIVE: CASE EVENT DATE: 20140514
